FAERS Safety Report 9130188 (Version 1)
Quarter: 2013Q1

REPORT INFORMATION
  Report Type: Spontaneous
  Country: US (occurrence: US)
  Receive Date: 20130228
  Receipt Date: 20130228
  Transmission Date: 20140127
  Serious: No
  Sender: FDA-Public Use
  Company Number: US-VIIV HEALTHCARE LIMITED-A0973931A

PATIENT
  Age: 32 Year
  Sex: Female

DRUGS (3)
  1. ZIAGEN [Suspect]
     Dates: start: 20120315, end: 20120417
  2. RITONAVIR [Concomitant]
  3. DARUNAVIR [Concomitant]

REACTIONS (5)
  - Hypersensitivity [Unknown]
  - Pyrexia [Unknown]
  - Rash [Unknown]
  - Myalgia [Unknown]
  - Respiratory disorder [Unknown]
